FAERS Safety Report 15265695 (Version 1)
Quarter: 2018Q3

REPORT INFORMATION
  Report Type: Spontaneous
  Country: US (occurrence: US)
  Receive Date: 20180723
  Receipt Date: 20180723
  Transmission Date: 20181010
  Serious: Yes (Hospitalization)
  Sender: FDA-Public Use
  Company Number: None

PATIENT
  Age: 16 Year
  Sex: Female

DRUGS (4)
  1. CEFTAZIDIME. [Concomitant]
     Active Substance: CEFTAZIDIME
  2. VITAMIN D3 [Suspect]
     Active Substance: CHOLECALCIFEROL
     Indication: CYSTIC FIBROSIS
     Route: 048
     Dates: start: 20151204
  3. TOBRAMYCIN. [Concomitant]
     Active Substance: TOBRAMYCIN
  4. BACTRIM [Concomitant]
     Active Substance: SULFAMETHOXAZOLE\TRIMETHOPRIM

REACTIONS (1)
  - Infection [None]

NARRATIVE: CASE EVENT DATE: 20180615
